FAERS Safety Report 8430749-5 (Version None)
Quarter: 2012Q2

REPORT INFORMATION
  Report Type: 
  Country: None (occurrence: None)
  Receive Date: 20120612
  Receipt Date: 20120601
  Transmission Date: 20120825
  Serious: Yes (Other)
  Sender: FDA-Public Use
  Company Number: US-ELI_LILLY_AND_COMPANY-US201010000089

PATIENT
  Sex: Male

DRUGS (6)
  1. FORTEO [Suspect]
     Dosage: 20 UG, QD
     Dates: start: 20100801
  2. FORTEO [Suspect]
     Dosage: 20 UG, QD
     Dates: start: 20100801
  3. FORTEO [Suspect]
     Dosage: 20 UG, QD
     Dates: start: 20100801
  4. FORTEO [Suspect]
     Indication: OSTEOPOROSIS
     Dosage: 20 UG, DAILY (1/D)
     Dates: start: 20100801
  5. FORTEO [Suspect]
     Dosage: 20 UG, DAILY (1/D)
     Dates: start: 20100801
  6. COUMADIN [Concomitant]
     Dosage: UNK

REACTIONS (7)
  - CONTUSION [None]
  - PRURITUS [None]
  - MUSCLE RUPTURE [None]
  - ARTHRALGIA [None]
  - HAEMORRHAGE [None]
  - CONSTIPATION [None]
  - ARTHRITIS [None]
